FAERS Safety Report 4648608-2 (Version None)
Quarter: 2005Q2

REPORT INFORMATION
  Report Type: 
  Country: None (occurrence: None)
  Receive Date: 20050429
  Receipt Date: 20050112
  Transmission Date: 20051028
  Serious: Yes (Death)
  Sender: FDA-Public Use
  Company Number: 200510317US

PATIENT
  Age: 80 Year
  Sex: Male

DRUGS (1)
  1. RIFADIN [Suspect]
     Indication: TUBERCULOSIS
     Dosage: DOSE: UNK

REACTIONS (2)
  - ANEURYSM RUPTURED [None]
  - RENAL FAILURE [None]
